FAERS Safety Report 9207236 (Version 1)
Quarter: 2013Q2

REPORT INFORMATION
  Report Type: Spontaneous
  Country: IT (occurrence: IT)
  Receive Date: 20130403
  Receipt Date: 20130403
  Transmission Date: 20140414
  Serious: Yes (Hospitalization)
  Sender: FDA-Public Use
  Company Number: IT-TEVA-394039ISR

PATIENT
  Age: 86 Year
  Sex: Female

DRUGS (7)
  1. METFORMIN [Suspect]
     Dosage: 2650 MILLIGRAM DAILY;
     Route: 048
     Dates: start: 20120101, end: 20130301
  2. DILATREND [Concomitant]
  3. LASIX [Concomitant]
  4. APROVEL [Concomitant]
  5. TORVAST [Concomitant]
  6. CATAPRESAN TTS [Concomitant]
  7. CARDIRENE [Concomitant]

REACTIONS (1)
  - Renal failure acute [Recovered/Resolved]
